FAERS Safety Report 5411322-X (Version None)
Quarter: 2007Q3

REPORT INFORMATION
  Report Type: 
  Country: None (occurrence: None)
  Receive Date: 20070808
  Receipt Date: 20070731
  Transmission Date: 20080115
  Serious: Yes (Other)
  Sender: FDA-Public Use
  Company Number: CAR-2007-015

PATIENT
  Age: 36 Year
  Sex: Female

DRUGS (5)
  1. SUCRALFATE [Suspect]
     Indication: GASTRITIS
     Dosage: 250 MG ORAL
     Route: 048
  2. IMIDAPRIL (IMIDAPRIL) [Suspect]
     Indication: HYPERTENSION
     Dosage: 5 MG ORAL
     Route: 048
  3. LORAZEPAM [Suspect]
     Indication: ANXIETY
     Dosage: 0.5 MG ORAL
     Route: 048
  4. BARNIDIPINE (BARNIDIPINE) [Suspect]
     Indication: HYPERTENSION
     Dosage: 10 MG ORAL
     Route: 048
  5. AMLODIPINE [Suspect]
     Indication: HYPERTENSION
     Dosage: 5 MG ORAL
     Route: 048

REACTIONS (3)
  - ABORTION INDUCED [None]
  - DRUG EXPOSURE DURING PREGNANCY [None]
  - INTRA-UTERINE DEATH [None]
